FAERS Safety Report 9029405 (Version 1)
Quarter: 2013Q1

REPORT INFORMATION
  Report Type: Spontaneous
  Country: FR (occurrence: FR)
  Receive Date: 20130125
  Receipt Date: 20130125
  Transmission Date: 20140127
  Serious: Yes (Hospitalization)
  Sender: FDA-Public Use
  Company Number: FR-NOVOPROD-369221

PATIENT
  Age: 70 Year
  Sex: Male

DRUGS (2)
  1. NOVOMIX 30 FLEXPEN [Suspect]
     Indication: PRODUCT USED FOR UNKNOWN INDICATION
     Dosage: 25 IU IN MORNING, 13 IU IN EVENING
  2. GLUCOPHAGE [Concomitant]
     Route: 065

REACTIONS (2)
  - Dyspnoea [Unknown]
  - Diarrhoea [Unknown]
